FAERS Safety Report 15309365 (Version 1)
Quarter: 2018Q3

REPORT INFORMATION
  Report Type: Spontaneous
  Country: US (occurrence: US)
  Receive Date: 20180823
  Receipt Date: 20180823
  Transmission Date: 20181010
  Serious: Yes (Other)
  Sender: FDA-Public Use
  Company Number: US-ACCORD-062531

PATIENT
  Age: 68 Year
  Sex: Female
  Weight: 86.18 kg

DRUGS (9)
  1. CELEBREX [Concomitant]
     Active Substance: CELECOXIB
  2. ERGOCALCIFEROL. [Concomitant]
     Active Substance: ERGOCALCIFEROL
  3. LINUM USITATISSIMUM [Concomitant]
  4. ANASTROZOLE. [Suspect]
     Active Substance: ANASTROZOLE
     Indication: BREAST CANCER
     Dosage: STRENGTH: 1 MG??DOSE: QAM
     Route: 048
  5. CALCIUM/MAGNESIUM [Concomitant]
  6. BIOTIN [Concomitant]
     Active Substance: BIOTIN
  7. CYANOCOBALAMIN. [Concomitant]
     Active Substance: CYANOCOBALAMIN
  8. HYDROMORPHONE/HYDROMORPHONE HYDROCHLORIDE [Concomitant]
  9. ASCORBIC ACID. [Concomitant]
     Active Substance: ASCORBIC ACID

REACTIONS (9)
  - Arthralgia [Unknown]
  - Paraesthesia [Unknown]
  - Bone pain [Unknown]
  - Pyrexia [Unknown]
  - Neuropathy peripheral [Unknown]
  - Hot flush [Unknown]
  - Hip fracture [Unknown]
  - Blood cholesterol increased [Unknown]
  - Alopecia [Unknown]
